FAERS Safety Report 25761641 (Version 1)
Quarter: 2025Q3

REPORT INFORMATION
  Report Type: Spontaneous
  Country: US (occurrence: US)
  Receive Date: 20250904
  Receipt Date: 20250904
  Transmission Date: 20251021
  Serious: Yes (Death, Other)
  Sender: GRIFOLS
  Company Number: US-IGSA-BIG0037688

PATIENT
  Age: 54 Year
  Sex: Female

DRUGS (1)
  1. PROLASTIN-C LIQUID [Suspect]
     Active Substance: .ALPHA.1-PROTEINASE INHIBITOR HUMAN
     Indication: Product used for unknown indication

REACTIONS (3)
  - Acute respiratory failure [Fatal]
  - Dyspnoea [Fatal]
  - Wheezing [Fatal]

NARRATIVE: CASE EVENT DATE: 20250818
